FAERS Safety Report 7153513-6 (Version None)
Quarter: 2010Q4

REPORT INFORMATION
  Report Type: 
  Country: None (occurrence: None)
  Receive Date: 20101213
  Receipt Date: 20101206
  Transmission Date: 20110411
  Serious: Yes (Hospitalization)
  Sender: FDA-Public Use
  Company Number: B0688649A

PATIENT
  Age: 48 Year
  Sex: Male

DRUGS (4)
  1. AMOXICILLIN [Suspect]
     Route: 065
  2. CEFADROXIL [Suspect]
     Route: 065
  3. PARACETAMOL [Concomitant]
     Route: 065
  4. MULTI-VITAMINS [Concomitant]
     Route: 065

REACTIONS (5)
  - BLISTER [None]
  - CONDITION AGGRAVATED [None]
  - MOUTH ULCERATION [None]
  - SKIN HYPERPIGMENTATION [None]
  - TOXIC EPIDERMAL NECROLYSIS [None]
